FAERS Safety Report 8695875 (Version 4)
Quarter: 2012Q4

REPORT INFORMATION
  Report Type: 
  Country: US (occurrence: US)
  Receive Date: 20120801
  Receipt Date: 20120928
  Transmission Date: 20130627
  Serious: No
  Sender: FDA-Public Use
  Company Number: US-AMGEN-USASP2012046855

PATIENT

DRUGS (1)
  1. XGEVA [Suspect]
     Indication: PROPHYLAXIS
     Dosage: 120 mg, q4wk
     Dates: start: 2012, end: 2012

REACTIONS (2)
  - Stomatitis [Unknown]
  - Oral pain [Unknown]
